FAERS Safety Report 18500372 (Version 3)
Quarter: 2021Q4

REPORT INFORMATION
  Report Type: Report from Study
  Country: US (occurrence: US)
  Receive Date: 20201113
  Receipt Date: 20211230
  Transmission Date: 20220303
  Serious: Yes (Hospitalization)
  Sender: FDA-Public Use
  Company Number: NVSC2020US289171

PATIENT
  Age: 83 Year
  Sex: Male
  Weight: 95 kg

DRUGS (17)
  1. EYLEA [Suspect]
     Active Substance: AFLIBERCEPT
     Indication: Neovascular age-related macular degeneration
     Dosage: 2 MG
     Route: 031
     Dates: start: 20190320
  2. LATANOPROST [Concomitant]
     Active Substance: LATANOPROST
     Indication: Open angle glaucoma
     Dosage: UNK
     Route: 065
     Dates: start: 20121101
  3. ASPIRIN [Concomitant]
     Active Substance: ASPIRIN
     Indication: Prophylaxis
     Dosage: UNK
     Route: 065
     Dates: start: 19950101
  4. NEXIUM [Concomitant]
     Active Substance: ESOMEPRAZOLE MAGNESIUM
     Indication: Gastrooesophageal reflux disease
     Dosage: UNK
     Route: 065
     Dates: start: 20100101
  5. NASONEX [Concomitant]
     Active Substance: MOMETASONE FUROATE
     Indication: Seasonal allergy
     Dosage: UNK
     Route: 065
     Dates: start: 20000101
  6. ATORVASTATIN [Concomitant]
     Active Substance: ATORVASTATIN
     Indication: Hypercholesterolaemia
     Dosage: UNK
     Route: 065
     Dates: start: 20110101
  7. ASACOL [Concomitant]
     Active Substance: MESALAMINE
     Indication: Diverticulitis
     Dosage: UNK
     Route: 065
     Dates: start: 19950101
  8. METAMUCIL [Concomitant]
     Active Substance: PLANTAGO SEED
     Indication: Constipation
     Dosage: UNK
     Route: 065
     Dates: start: 19910101
  9. MONTELUKAST [Concomitant]
     Active Substance: MONTELUKAST SODIUM
     Indication: Seasonal allergy
     Dosage: UNK
     Route: 065
     Dates: start: 20100101
  10. DICYCLOMINE [Concomitant]
     Active Substance: DICYCLOMINE HYDROCHLORIDE
     Indication: Colitis
     Dosage: UNK
     Route: 065
     Dates: start: 20180101
  11. MINERALS\VITAMINS [Concomitant]
     Active Substance: MINERALS\VITAMINS
     Indication: Dry age-related macular degeneration
     Dosage: UNK
     Route: 065
     Dates: start: 20120730
  12. MESALAMINE [Concomitant]
     Active Substance: MESALAMINE
     Indication: Colitis
     Dosage: UNK
     Route: 065
     Dates: start: 20180101
  13. PROPARACAINE [Concomitant]
     Active Substance: PROPARACAINE
     Indication: Neovascular age-related macular degeneration
     Dosage: UNK
     Route: 065
     Dates: start: 20190313
  14. TROPICAMIDE [Concomitant]
     Active Substance: TROPICAMIDE
     Indication: Neovascular age-related macular degeneration
     Dosage: UNK
     Route: 065
     Dates: start: 20190313
  15. PHENYLEPHRINE [Concomitant]
     Active Substance: PHENYLEPHRINE HYDROCHLORIDE
     Indication: Neovascular age-related macular degeneration
     Dosage: UNK
     Route: 065
     Dates: start: 20190313
  16. AKTEN [Concomitant]
     Active Substance: LIDOCAINE HYDROCHLORIDE
     Indication: Neovascular age-related macular degeneration
     Dosage: UNK
     Route: 065
     Dates: start: 20190320
  17. BETADINE [Concomitant]
     Active Substance: POVIDONE-IODINE
     Indication: Neovascular age-related macular degeneration
     Dosage: UNK
     Route: 065
     Dates: start: 20190320

REACTIONS (1)
  - Transient ischaemic attack [Recovered/Resolved]

NARRATIVE: CASE EVENT DATE: 20201025
